FAERS Safety Report 9387760 (Version 1)
Quarter: 2013Q3

REPORT INFORMATION
  Report Type: Spontaneous
  Country: ZA (occurrence: None)
  Receive Date: 20130703
  Receipt Date: 20130703
  Transmission Date: 20140515
  Serious: Yes (Other)
  Sender: FDA-Public Use
  Company Number: SYM-2013-05321

PATIENT
  Age: 33 Year
  Sex: Female
  Weight: 60 kg

DRUGS (1)
  1. EFUDEX [Suspect]
     Indication: SKIN DISCOLOURATION
     Dosage: 1 IN 1 D, DERMATOLOGICAL
     Dates: start: 20121110

REACTIONS (4)
  - Skin discolouration [None]
  - Pain [None]
  - Discomfort [None]
  - Hyperaemia [None]
